FAERS Safety Report 16570746 (Version 2)
Quarter: 2019Q3

REPORT INFORMATION
  Report Type: Spontaneous
  Country: US (occurrence: US)
  Receive Date: 20190715
  Receipt Date: 20190730
  Transmission Date: 20191004
  Serious: Yes (Other)
  Sender: FDA-Public Use
  Company Number: US-PFIZER INC-2019298239

PATIENT
  Age: 75 Year
  Sex: Female
  Weight: 54.42 kg

DRUGS (2)
  1. PREMARIN [Suspect]
     Active Substance: ESTROGENS, CONJUGATED
     Indication: OSTEOPENIA
     Dosage: UNK
  2. SYNTHROID [Concomitant]
     Active Substance: LEVOTHYROXINE SODIUM
     Dosage: UNK

REACTIONS (5)
  - Rash [Unknown]
  - Exostosis [Unknown]
  - Product use in unapproved indication [Unknown]
  - Off label use [Unknown]
  - Rubber sensitivity [Unknown]
